FAERS Safety Report 23657974 (Version 1)
Quarter: 2024Q1

REPORT INFORMATION
  Report Type: Spontaneous
  Country: US (occurrence: None)
  Receive Date: 20240320
  Receipt Date: 20240320
  Transmission Date: 20240410
  Serious: Yes (Life-Threatening, Hospitalization, Disabling, Other)
  Sender: FDA-Public Use
  Company Number: None

PATIENT
  Age: 21 Year
  Sex: Male
  Weight: 72 kg

DRUGS (1)
  1. SPINOSAD [Suspect]
     Active Substance: SPINOSAD
     Indication: Lice infestation
     Route: 061
     Dates: start: 20240228, end: 20240228

REACTIONS (4)
  - Lice infestation [None]
  - Condition aggravated [None]
  - Anxiety [None]
  - Stress [None]

NARRATIVE: CASE EVENT DATE: 20240228
